FAERS Safety Report 23434730 (Version 2)
Quarter: 2024Q3

REPORT INFORMATION
  Report Type: Spontaneous
  Country: US (occurrence: US)
  Receive Date: 20240123
  Receipt Date: 20240721
  Transmission Date: 20241017
  Serious: No
  Sender: NOVO NORDISK
  Company Number: US-NOVOPROD-1145540

PATIENT
  Age: 32 Year
  Sex: Male

DRUGS (2)
  1. WEGOVY [Suspect]
     Active Substance: SEMAGLUTIDE
     Dosage: 2.4MG
  2. WEGOVY [Suspect]
     Active Substance: SEMAGLUTIDE
     Indication: Weight control
     Dosage: 1.7MG
     Route: 058
     Dates: start: 20231112, end: 20231203

REACTIONS (1)
  - Injection site vesicles [Recovered/Resolved]

NARRATIVE: CASE EVENT DATE: 20231119
